FAERS Safety Report 5105014-4 (Version None)
Quarter: 2006Q3

REPORT INFORMATION
  Report Type: 
  Country: None (occurrence: None)
  Receive Date: 20060911
  Receipt Date: 20060825
  Transmission Date: 20061208
  Serious: Yes (Life-Threatening, Hospitalization)
  Sender: FDA-Public Use
  Company Number: US200608005230

PATIENT
  Sex: Female
  Weight: 56 kg

DRUGS (6)
  1. CYMBALTA [Suspect]
     Indication: PAIN MANAGEMENT
     Dosage: 30 + 60MG, DAILY (1/D), UNK
     Dates: start: 20060720, end: 20060727
  2. CYMBALTA [Suspect]
     Indication: PAIN MANAGEMENT
     Dosage: 30 + 60MG, DAILY (1/D), UNK
     Dates: start: 20060728, end: 20060802
  3. DURAGESIC-100 [Concomitant]
  4. RITALIN [Concomitant]
  5. METHYLPHENIDATE HCL [Concomitant]
  6. DEPO-PROVERA SUSPENSION/INJ [Concomitant]

REACTIONS (3)
  - ALCOHOL USE [None]
  - HEPATITIS [None]
  - PANCREATITIS [None]
